FAERS Safety Report 8282221-3 (Version None)
Quarter: 2012Q2

REPORT INFORMATION
  Report Type: 
  Country: None (occurrence: None)
  Receive Date: 20120413
  Receipt Date: 20120409
  Transmission Date: 20120825
  Serious: Yes (Hospitalization)
  Sender: FDA-Public Use
  Company Number: US-GENZYME-FLUD-1001463

PATIENT
  Age: 53 Year
  Sex: Female
  Weight: 74.376 kg

DRUGS (3)
  1. CYTOXAN [Suspect]
     Indication: CHRONIC LYMPHOCYTIC LEUKAEMIA
     Dosage: 460 MG, DAY 1-3 PER CYCLE
     Route: 042
     Dates: start: 20110516, end: 20120116
  2. RITUXIMAB [Suspect]
     Indication: CHRONIC LYMPHOCYTIC LEUKAEMIA
     Dosage: 920 MG, DAY 1 EVERY CYCLE
     Route: 042
     Dates: start: 20100119, end: 20120112
  3. FLUDARA [Suspect]
     Indication: CHRONIC LYMPHOCYTIC LEUKAEMIA RECURRENT
     Dosage: 46 MG, DAY 1-3 PER CYCLE
     Route: 042
     Dates: start: 20111214, end: 20120116

REACTIONS (4)
  - FEBRILE NEUTROPENIA [None]
  - DIZZINESS [None]
  - HYPOTENSION [None]
  - RASH [None]
